FAERS Safety Report 19728426 (Version 1)
Quarter: 2021Q3

REPORT INFORMATION
  Report Type: Spontaneous
  Country: GB (occurrence: GB)
  Receive Date: 20210820
  Receipt Date: 20210820
  Transmission Date: 20211014
  Serious: Yes (Other)
  Sender: FDA-Public Use
  Company Number: GB-SUN PHARMACEUTICAL INDUSTRIES LTD-2021RR-308724

PATIENT
  Sex: Female

DRUGS (1)
  1. FINGOLIMOD. [Suspect]
     Active Substance: FINGOLIMOD
     Indication: MULTIPLE SCLEROSIS
     Dosage: 0.5 MILLIGRAM, QD
     Route: 048
     Dates: start: 20200812

REACTIONS (12)
  - Limb discomfort [Unknown]
  - Lymphocyte count decreased [Unknown]
  - Pelvic pain [Unknown]
  - Multiple sclerosis relapse [Unknown]
  - Band sensation [Unknown]
  - Pain in extremity [Unknown]
  - Neuralgia [Unknown]
  - Peripheral swelling [Unknown]
  - Melanocytic naevus [Unknown]
  - Fatigue [Unknown]
  - Back pain [Unknown]
  - Muscle tightness [Unknown]
